FAERS Safety Report 5954600-8 (Version None)
Quarter: 2008Q4

REPORT INFORMATION
  Report Type: 
  Country: None (occurrence: None)
  Receive Date: 20081117
  Receipt Date: 20081114
  Transmission Date: 20090506
  Serious: Yes (Other)
  Sender: FDA-Public Use
  Company Number: US-BIOGENIDEC-2008BI030063

PATIENT
  Sex: Female

DRUGS (1)
  1. AVONEX [Suspect]
     Indication: MULTIPLE SCLEROSIS
     Route: 030
     Dates: start: 20070514

REACTIONS (4)
  - BREAST CYST [None]
  - BREAST MASS [None]
  - FAECES DISCOLOURED [None]
  - PRECANCEROUS CELLS PRESENT [None]
